FAERS Safety Report 17989574 (Version 1)
Quarter: 2020Q3

REPORT INFORMATION
  Report Type: Spontaneous
  Country: US (occurrence: US)
  Receive Date: 20200705
  Receipt Date: 20200705
  Transmission Date: 20201103
  Serious: No
  Sender: FDA-Public Use
  Company Number: None

PATIENT
  Age: 36 Year
  Sex: Male
  Weight: 83.25 kg

DRUGS (1)
  1. REAL TIME PAIN HAND SANITIZER [Suspect]
     Active Substance: ALCOHOL
     Indication: INFECTION PROPHYLAXIS

REACTIONS (1)
  - Suspected product quality issue [None]

NARRATIVE: CASE EVENT DATE: 20200620
